FAERS Safety Report 18371164 (Version 32)
Quarter: 2024Q1

REPORT INFORMATION
  Report Type: Spontaneous
  Country: CA (occurrence: CA)
  Receive Date: 20201012
  Receipt Date: 20240213
  Transmission Date: 20240410
  Serious: Yes (Life-Threatening, Hospitalization, Other)
  Sender: FDA-Public Use
  Company Number: CA-BAUSCH-BL-2019-025011

PATIENT
  Age: 56 Year
  Sex: Male

DRUGS (450)
  1. CICLOPIROX [Suspect]
     Active Substance: CICLOPIROX\TOCOPHEROL
     Indication: Prinzmetal angina
     Dosage: CICLOPIROX
     Route: 065
  2. CICLOPIROX [Suspect]
     Active Substance: CICLOPIROX\TOCOPHEROL
     Indication: Migraine
     Dosage: CICLOPIROX
     Route: 065
  3. CICLOPIROX [Suspect]
     Active Substance: CICLOPIROX\TOCOPHEROL
     Dosage: CICLOPIROX OLAMINE
     Route: 065
  4. DILTIAZEM [Suspect]
     Active Substance: DILTIAZEM
     Indication: Prinzmetal angina
     Route: 065
  5. DILTIAZEM [Suspect]
     Active Substance: DILTIAZEM
     Indication: Migraine
     Route: 048
  6. DILTIAZEM [Suspect]
     Active Substance: DILTIAZEM
     Route: 065
  7. DILTIAZEM [Suspect]
     Active Substance: DILTIAZEM
     Route: 065
  8. DILTIAZEM [Suspect]
     Active Substance: DILTIAZEM
     Route: 048
  9. DILTIAZEM [Suspect]
     Active Substance: DILTIAZEM
     Route: 048
  10. DILTIAZEM [Suspect]
     Active Substance: DILTIAZEM
     Route: 065
  11. DILTIAZEM [Suspect]
     Active Substance: DILTIAZEM
     Route: 048
  12. DILTIAZEM [Suspect]
     Active Substance: DILTIAZEM
     Dosage: DILTIAZEM?HYDROCHLORIDE
     Route: 065
  13. HYDROCORTISONE [Suspect]
     Active Substance: HYDROCORTISONE
     Indication: Product used for unknown indication
     Dosage: NOT SPECIFIED
     Route: 061
  14. HYDROCORTISONE [Suspect]
     Active Substance: HYDROCORTISONE
     Indication: Prinzmetal angina
     Route: 065
  15. HYDROCORTISONE [Suspect]
     Active Substance: HYDROCORTISONE
     Indication: Migraine
     Dosage: NOT SPECIFIED
     Route: 065
  16. HYDROCORTISONE [Suspect]
     Active Substance: HYDROCORTISONE
     Route: 061
  17. HYDROCORTISONE [Suspect]
     Active Substance: HYDROCORTISONE
     Dosage: NOT SPECIFIED
     Route: 061
  18. HYDROCORTISONE [Suspect]
     Active Substance: HYDROCORTISONE
     Route: 065
  19. HYDROCORTISONE [Suspect]
     Active Substance: HYDROCORTISONE
     Route: 061
  20. HYDROCORTISONE [Suspect]
     Active Substance: HYDROCORTISONE
     Dosage: HYDROCORTISONE?BUTYRATE
     Route: 065
  21. NITROGLYCERIN [Suspect]
     Active Substance: NITROGLYCERIN
     Indication: Prinzmetal angina
     Dosage: GLYCERYL TRINITRATE
     Route: 065
  22. NITROGLYCERIN [Suspect]
     Active Substance: NITROGLYCERIN
     Indication: Migraine
     Dosage: GLYCERYL TRINITRATE
     Route: 065
  23. NITROGLYCERIN [Suspect]
     Active Substance: NITROGLYCERIN
     Dosage: GLYCERYL TRINITRATE
     Route: 065
  24. NITROGLYCERIN [Suspect]
     Active Substance: NITROGLYCERIN
     Dosage: NITROGLYCERIN
     Route: 065
  25. NITROGLYCERIN [Suspect]
     Active Substance: NITROGLYCERIN
     Dosage: NITROGLYCERIN
     Route: 065
  26. NITROGLYCERIN [Suspect]
     Active Substance: NITROGLYCERIN
     Dosage: NITROGLYCERIN
     Route: 065
  27. TESTOSTERONE [Suspect]
     Active Substance: TESTOSTERONE
     Indication: Product used for unknown indication
     Dosage: TESTOSTERONE ENANTHATE
     Route: 065
  28. TESTOSTERONE [Suspect]
     Active Substance: TESTOSTERONE
     Dosage: LIQUID INTRAMUSCULAR, TESTOSTERONE ENANTHATE
     Route: 030
  29. TESTOSTERONE [Suspect]
     Active Substance: TESTOSTERONE
     Dosage: LIQUID INTRAMUSCULAR, TESTOSTERONE ENANTHATE
     Route: 030
  30. TESTOSTERONE [Suspect]
     Active Substance: TESTOSTERONE
     Dosage: NOT SPECIFIED
     Route: 065
  31. DELATESTRYL [Suspect]
     Active Substance: TESTOSTERONE ENANTHATE
     Indication: Prinzmetal angina
     Dosage: SOLUTION INTRAMUSCULAR (FILL SIZE: 5 ML)
     Route: 030
  32. DELATESTRYL [Suspect]
     Active Substance: TESTOSTERONE ENANTHATE
     Indication: Migraine
     Route: 030
  33. DELATESTRYL [Suspect]
     Active Substance: TESTOSTERONE ENANTHATE
     Route: 030
  34. DELATESTRYL [Suspect]
     Active Substance: TESTOSTERONE ENANTHATE
     Route: 030
  35. DELATESTRYL [Suspect]
     Active Substance: TESTOSTERONE ENANTHATE
     Route: 030
  36. DELATESTRYL [Suspect]
     Active Substance: TESTOSTERONE ENANTHATE
     Route: 030
  37. DELATESTRYL [Suspect]
     Active Substance: TESTOSTERONE ENANTHATE
     Dosage: SOLUTION INTRAMUSCULAR
     Route: 030
  38. DELATESTRYL [Suspect]
     Active Substance: TESTOSTERONE ENANTHATE
     Route: 065
  39. DELATESTRYL [Suspect]
     Active Substance: TESTOSTERONE ENANTHATE
     Route: 030
  40. DELATESTRYL [Suspect]
     Active Substance: TESTOSTERONE ENANTHATE
     Route: 065
  41. DELATESTRYL [Suspect]
     Active Substance: TESTOSTERONE ENANTHATE
     Route: 065
  42. DELATESTRYL [Suspect]
     Active Substance: TESTOSTERONE ENANTHATE
     Route: 065
  43. DELATESTRYL [Suspect]
     Active Substance: TESTOSTERONE ENANTHATE
     Route: 065
  44. DELATESTRYL [Suspect]
     Active Substance: TESTOSTERONE ENANTHATE
     Route: 030
  45. DELATESTRYL [Suspect]
     Active Substance: TESTOSTERONE ENANTHATE
     Route: 030
  46. DELATESTRYL [Suspect]
     Active Substance: TESTOSTERONE ENANTHATE
     Route: 065
  47. DELATESTRYL [Suspect]
     Active Substance: TESTOSTERONE ENANTHATE
     Dosage: SOLUTION INTRAMUSCULAR
     Route: 030
  48. DELATESTRYL [Suspect]
     Active Substance: TESTOSTERONE ENANTHATE
     Route: 030
  49. RAMIPRIL [Suspect]
     Active Substance: RAMIPRIL
     Indication: Product used for unknown indication
     Route: 065
  50. RAMIPRIL [Suspect]
     Active Substance: RAMIPRIL
     Indication: Product use issue
     Dosage: NOT SPECIFIED
     Route: 065
  51. RAMIPRIL [Suspect]
     Active Substance: RAMIPRIL
     Route: 065
  52. RAMIPRIL [Suspect]
     Active Substance: RAMIPRIL
     Route: 048
  53. RAMIPRIL [Suspect]
     Active Substance: RAMIPRIL
     Dosage: NOT SPECIFIED
     Route: 065
  54. RAMIPRIL [Suspect]
     Active Substance: RAMIPRIL
     Dosage: NOT SPECIFIED
     Route: 065
  55. RAMIPRIL [Suspect]
     Active Substance: RAMIPRIL
     Route: 048
  56. RAMIPRIL [Suspect]
     Active Substance: RAMIPRIL
     Route: 048
  57. RAMIPRIL [Suspect]
     Active Substance: RAMIPRIL
     Route: 048
  58. RAMIPRIL [Suspect]
     Active Substance: RAMIPRIL
     Route: 065
  59. RAMIPRIL [Suspect]
     Active Substance: RAMIPRIL
     Route: 065
  60. RAMIPRIL [Suspect]
     Active Substance: RAMIPRIL
     Route: 048
  61. FLOMAX [Suspect]
     Active Substance: TAMSULOSIN HYDROCHLORIDE
     Indication: Prinzmetal angina
     Dosage: CONTROLLED, EXTENDED RELEASE
     Route: 048
  62. FLOMAX [Suspect]
     Active Substance: TAMSULOSIN HYDROCHLORIDE
     Indication: Migraine
     Route: 048
  63. FLOMAX [Suspect]
     Active Substance: TAMSULOSIN HYDROCHLORIDE
     Route: 065
  64. FLOMAX [Suspect]
     Active Substance: TAMSULOSIN HYDROCHLORIDE
     Route: 048
  65. FLOMAX [Suspect]
     Active Substance: TAMSULOSIN HYDROCHLORIDE
     Route: 048
  66. FLOMAX [Suspect]
     Active Substance: TAMSULOSIN HYDROCHLORIDE
     Route: 065
  67. TRAZODONE [Suspect]
     Active Substance: TRAZODONE HYDROCHLORIDE
     Indication: Prinzmetal angina
     Dosage: TRAZODONE
     Route: 065
  68. TRAZODONE [Suspect]
     Active Substance: TRAZODONE HYDROCHLORIDE
     Indication: Migraine
     Dosage: TRAZODONE
     Route: 065
  69. TRAZODONE [Suspect]
     Active Substance: TRAZODONE HYDROCHLORIDE
     Dosage: TRAZODONE
     Route: 065
  70. TRAZODONE [Suspect]
     Active Substance: TRAZODONE HYDROCHLORIDE
     Dosage: TRAZODONE HYDROCHLORIDE
     Route: 065
  71. TRAZODONE [Suspect]
     Active Substance: TRAZODONE HYDROCHLORIDE
     Dosage: TRAZODONE HYDROCHLORIDE
     Route: 065
  72. TRAZODONE [Suspect]
     Active Substance: TRAZODONE HYDROCHLORIDE
     Dosage: TRAZODONE HYDROCHLORIDE
     Route: 048
  73. TRAZODONE [Suspect]
     Active Substance: TRAZODONE HYDROCHLORIDE
     Dosage: TRAZODONE HYDROCHLORIDE
     Route: 065
  74. TRAZODONE [Suspect]
     Active Substance: TRAZODONE HYDROCHLORIDE
     Dosage: TRAZODONE HYDROCHLORIDE
     Route: 065
  75. DEXILANT [Suspect]
     Active Substance: DEXLANSOPRAZOLE
     Indication: Prinzmetal angina
     Dosage: CAPSULE, DELAYED RELEASE
     Route: 065
  76. DEXILANT [Suspect]
     Active Substance: DEXLANSOPRAZOLE
     Indication: Migraine
     Route: 065
  77. DEXILANT [Suspect]
     Active Substance: DEXLANSOPRAZOLE
     Dosage: CAPSULE, DELAYED RELEASE
     Route: 065
  78. DEXILANT [Suspect]
     Active Substance: DEXLANSOPRAZOLE
     Route: 048
  79. DEXILANT [Suspect]
     Active Substance: DEXLANSOPRAZOLE
     Route: 065
  80. DEXILANT [Suspect]
     Active Substance: DEXLANSOPRAZOLE
     Route: 065
  81. DEXILANT [Suspect]
     Active Substance: DEXLANSOPRAZOLE
     Route: 065
  82. DEXILANT [Suspect]
     Active Substance: DEXLANSOPRAZOLE
     Route: 048
  83. DEXILANT [Suspect]
     Active Substance: DEXLANSOPRAZOLE
     Dosage: CAPSULE, DELAYED RELEASE
     Route: 065
  84. DEXILANT [Suspect]
     Active Substance: DEXLANSOPRAZOLE
     Route: 048
  85. HYDROCORTISONE [Suspect]
     Active Substance: HYDROCORTISONE
     Indication: Product used for unknown indication
     Dosage: NOT SPECIFIED
     Route: 065
  86. HYDROCORTISONE [Suspect]
     Active Substance: HYDROCORTISONE
     Dosage: NOT SPECIFIED
     Route: 061
  87. HYDROCORTISONE [Suspect]
     Active Substance: HYDROCORTISONE
     Route: 061
  88. HYDROCORTISONE [Suspect]
     Active Substance: HYDROCORTISONE
     Route: 065
  89. HYDROCORTISONE [Suspect]
     Active Substance: HYDROCORTISONE
     Route: 065
  90. ESCITALOPRAM [Suspect]
     Active Substance: ESCITALOPRAM OXALATE
     Indication: Prinzmetal angina
     Dosage: ESCITALOPRAM
     Route: 065
  91. ESCITALOPRAM [Suspect]
     Active Substance: ESCITALOPRAM OXALATE
     Indication: Migraine
     Dosage: ESCITALOPRAM
     Route: 065
  92. ESCITALOPRAM [Suspect]
     Active Substance: ESCITALOPRAM OXALATE
     Dosage: ESCITALOPRAM OXALATE
     Route: 065
  93. ESCITALOPRAM [Suspect]
     Active Substance: ESCITALOPRAM OXALATE
     Dosage: ESCITALOPRAM OXALATE
     Route: 065
  94. ESCITALOPRAM [Suspect]
     Active Substance: ESCITALOPRAM OXALATE
     Dosage: ESCITALOPRAM OXALATE
     Route: 065
  95. ESCITALOPRAM [Suspect]
     Active Substance: ESCITALOPRAM OXALATE
     Dosage: ESCITALOPRAM OXALATE
     Route: 065
  96. ESCITALOPRAM [Suspect]
     Active Substance: ESCITALOPRAM OXALATE
     Dosage: ESCITALOPRAM OXALATE
     Route: 065
  97. ESCITALOPRAM [Suspect]
     Active Substance: ESCITALOPRAM OXALATE
     Dosage: ESCITALOPRAM OXALATE
     Route: 030
  98. ESCITALOPRAM [Suspect]
     Active Substance: ESCITALOPRAM OXALATE
     Dosage: ESCITALOPRAM OXALATE
     Route: 065
  99. METOCLOPRAMIDE [Suspect]
     Active Substance: METOCLOPRAMIDE
     Indication: Migraine
     Route: 065
  100. METOCLOPRAMIDE [Suspect]
     Active Substance: METOCLOPRAMIDE
     Indication: Prinzmetal angina
     Route: 048
  101. METOCLOPRAMIDE [Suspect]
     Active Substance: METOCLOPRAMIDE
     Route: 065
  102. METOCLOPRAMIDE [Suspect]
     Active Substance: METOCLOPRAMIDE
     Dosage: NOT SPECIFIED
     Route: 065
  103. METOCLOPRAMIDE [Suspect]
     Active Substance: METOCLOPRAMIDE
     Route: 065
  104. METOCLOPRAMIDE [Suspect]
     Active Substance: METOCLOPRAMIDE
     Route: 065
  105. METOCLOPRAMIDE [Suspect]
     Active Substance: METOCLOPRAMIDE
     Route: 065
  106. NITROGLYCERIN [Suspect]
     Active Substance: NITROGLYCERIN
     Indication: Prinzmetal angina
     Dosage: MYLAN-NITRO SUBLINGUAL SPRAY
     Route: 065
  107. NITROGLYCERIN [Suspect]
     Active Substance: NITROGLYCERIN
     Route: 048
  108. NITROGLYCERIN [Suspect]
     Active Substance: NITROGLYCERIN
     Route: 048
  109. NITROGLYCERIN [Suspect]
     Active Substance: NITROGLYCERIN
     Dosage: METERED-DOSE (AEROSOL)
     Route: 048
  110. NITRO-DUR [Suspect]
     Active Substance: NITROGLYCERIN
     Indication: Product used for unknown indication
     Dosage: EXTENDED RELEASE PATCH
     Route: 065
  111. NITRO-DUR [Suspect]
     Active Substance: NITROGLYCERIN
     Route: 065
  112. NITRO-DUR [Suspect]
     Active Substance: NITROGLYCERIN
     Route: 065
  113. ZOPICLONE [Suspect]
     Active Substance: ZOPICLONE
     Indication: Product used for unknown indication
     Route: 048
  114. ZOPICLONE [Suspect]
     Active Substance: ZOPICLONE
     Indication: Prinzmetal angina
     Route: 048
  115. ZOPICLONE [Suspect]
     Active Substance: ZOPICLONE
     Indication: Migraine
     Route: 048
  116. ZOPICLONE [Suspect]
     Active Substance: ZOPICLONE
     Route: 065
  117. ROSUVASTATIN [Suspect]
     Active Substance: ROSUVASTATIN
     Indication: Prinzmetal angina
     Dosage: ROSUVASTATIN
     Route: 048
  118. ROSUVASTATIN [Suspect]
     Active Substance: ROSUVASTATIN
     Indication: Migraine
     Dosage: ROSUVASTATIN
     Route: 065
  119. ROSUVASTATIN [Suspect]
     Active Substance: ROSUVASTATIN
     Dosage: ROSUVASTATIN
     Route: 065
  120. ROSUVASTATIN [Suspect]
     Active Substance: ROSUVASTATIN
     Dosage: ROSUVASTATIN
     Route: 061
  121. ROSUVASTATIN [Suspect]
     Active Substance: ROSUVASTATIN
     Dosage: ROSUVASTATIN
     Route: 048
  122. ROSUVASTATIN [Suspect]
     Active Substance: ROSUVASTATIN
     Dosage: ROSUVASTATIN
     Route: 065
  123. ROSUVASTATIN [Suspect]
     Active Substance: ROSUVASTATIN
     Dosage: ROSUVASTATIN
     Route: 065
  124. ROSUVASTATIN [Suspect]
     Active Substance: ROSUVASTATIN
     Dosage: ROSUVASTATIN
     Route: 065
  125. ROSUVASTATIN [Suspect]
     Active Substance: ROSUVASTATIN
     Dosage: ROSUVASTATIN
     Route: 065
  126. ROSUVASTATIN [Suspect]
     Active Substance: ROSUVASTATIN
     Dosage: ROSUVASTATIN
     Route: 065
  127. ROSUVASTATIN [Suspect]
     Active Substance: ROSUVASTATIN
     Dosage: ROSUVASTATIN
     Route: 065
  128. ROSUVASTATIN [Suspect]
     Active Substance: ROSUVASTATIN
     Dosage: ROSUVASTATIN
     Route: 065
  129. ROSUVASTATIN [Suspect]
     Active Substance: ROSUVASTATIN
     Dosage: ROSUVASTATIN
     Route: 065
  130. ROSUVASTATIN [Suspect]
     Active Substance: ROSUVASTATIN
     Dosage: ROSUVASTATIN CALCIUM
     Route: 065
  131. ROSUVASTATIN [Suspect]
     Active Substance: ROSUVASTATIN
     Dosage: ROSUVASTATIN CALCIUM
     Route: 065
  132. ROSUVASTATIN [Suspect]
     Active Substance: ROSUVASTATIN
     Dosage: ROSUVASTATIN CALCIUM
     Route: 048
  133. ROSUVASTATIN [Suspect]
     Active Substance: ROSUVASTATIN
     Dosage: ROSUVASTATIN CALCIUM
     Route: 048
  134. ROSUVASTATIN [Suspect]
     Active Substance: ROSUVASTATIN
     Dosage: ROSUVASTATIN CALCIUM
     Route: 065
  135. ROSUVASTATIN [Suspect]
     Active Substance: ROSUVASTATIN
     Dosage: ROSUVASTATIN CALCIUM
     Route: 065
  136. ROSUVASTATIN [Suspect]
     Active Substance: ROSUVASTATIN
     Dosage: ROSUVASTATIN CALCIUM
     Route: 065
  137. ROSUVASTATIN [Suspect]
     Active Substance: ROSUVASTATIN
     Dosage: ROSUVASTATIN CALCIUM
     Route: 065
  138. ROSUVASTATIN [Suspect]
     Active Substance: ROSUVASTATIN
     Dosage: ROSUVASTATIN CALCIUM
     Route: 065
  139. ROSUVASTATIN [Suspect]
     Active Substance: ROSUVASTATIN
     Dosage: ROSUVASTATIN CALCIUM
     Route: 065
  140. ROSUVASTATIN [Suspect]
     Active Substance: ROSUVASTATIN
     Dosage: ROSUVASTATIN CALCIUM
     Route: 061
  141. ROSUVASTATIN [Suspect]
     Active Substance: ROSUVASTATIN
     Dosage: ROSUVASTATIN CALCIUM
     Route: 048
  142. ROSUVASTATIN [Suspect]
     Active Substance: ROSUVASTATIN
     Dosage: ROSUVASTATIN CALCIUM
     Route: 065
  143. ROSUVASTATIN [Suspect]
     Active Substance: ROSUVASTATIN
     Dosage: ROSUVASTATIN CALCIUM
     Route: 065
  144. ROSUVASTATIN [Suspect]
     Active Substance: ROSUVASTATIN
     Dosage: ROSUVASTATIN CALCIUM
     Route: 065
  145. ROSUVASTATIN [Suspect]
     Active Substance: ROSUVASTATIN
     Dosage: ROSUVASTATIN CALCIUM
     Route: 065
  146. ROSUVASTATIN [Suspect]
     Active Substance: ROSUVASTATIN
     Dosage: ROSUVASTATIN CALCIUM
     Route: 065
  147. ROSUVASTATIN [Suspect]
     Active Substance: ROSUVASTATIN
     Dosage: ROSUVASTATIN CALCIUM
     Route: 065
  148. ROSUVASTATIN [Suspect]
     Active Substance: ROSUVASTATIN
     Dosage: ROSUVASTATIN CALCIUM
     Route: 065
  149. NASONEX [Suspect]
     Active Substance: MOMETASONE FUROATE
     Indication: Product used for unknown indication
     Dosage: INTRA-NASAL, SPRAY METERED DOSE
     Route: 045
  150. NASONEX [Suspect]
     Active Substance: MOMETASONE FUROATE
     Indication: Prinzmetal angina
     Route: 065
  151. NASONEX [Suspect]
     Active Substance: MOMETASONE FUROATE
     Indication: Migraine
     Dosage: SPRAY, METERED DOSE
     Route: 045
  152. BISOPROLOL [Suspect]
     Active Substance: BISOPROLOL\BISOPROLOL FUMARATE
     Indication: Prinzmetal angina
     Dosage: BISOPROLOL
     Route: 065
  153. BISOPROLOL [Suspect]
     Active Substance: BISOPROLOL\BISOPROLOL FUMARATE
     Indication: Migraine
     Dosage: BISOPROLOL
     Route: 048
  154. BISOPROLOL [Suspect]
     Active Substance: BISOPROLOL\BISOPROLOL FUMARATE
     Dosage: BISOPROLOL
     Route: 065
  155. BISOPROLOL [Suspect]
     Active Substance: BISOPROLOL\BISOPROLOL FUMARATE
     Dosage: BISOPROLOL
     Route: 065
  156. BISOPROLOL [Suspect]
     Active Substance: BISOPROLOL\BISOPROLOL FUMARATE
     Dosage: BISOPROLOL FUMARATE
     Route: 048
  157. BISOPROLOL [Suspect]
     Active Substance: BISOPROLOL\BISOPROLOL FUMARATE
     Dosage: BISOPROLOL FUMARATE
     Route: 065
  158. ASPIRIN [Suspect]
     Active Substance: ASPIRIN
     Indication: Prinzmetal angina
     Route: 065
  159. ASPIRIN [Suspect]
     Active Substance: ASPIRIN
     Indication: Migraine
     Route: 065
  160. ASPIRIN [Suspect]
     Active Substance: ASPIRIN
     Dosage: NOT SPECIFIED
     Route: 065
  161. ASPIRIN [Suspect]
     Active Substance: ASPIRIN
     Route: 048
  162. ASPIRIN [Suspect]
     Active Substance: ASPIRIN
     Dosage: NOT SPECIFIED
     Route: 065
  163. ASPIRIN [Suspect]
     Active Substance: ASPIRIN
     Route: 065
  164. ASPIRIN [Suspect]
     Active Substance: ASPIRIN
     Route: 048
  165. ASPIRIN [Suspect]
     Active Substance: ASPIRIN
     Route: 065
  166. ASPIRIN [Suspect]
     Active Substance: ASPIRIN
     Route: 048
  167. ASPIRIN [Suspect]
     Active Substance: ASPIRIN
     Route: 048
  168. ASPIRIN [Suspect]
     Active Substance: ASPIRIN
     Route: 065
  169. MOMETASONE FUROATE [Suspect]
     Active Substance: MOMETASONE FUROATE
     Indication: Prinzmetal angina
     Dosage: NOT SPECIFIED
     Route: 065
  170. MOMETASONE FUROATE [Suspect]
     Active Substance: MOMETASONE FUROATE
     Indication: Migraine
     Dosage: NOT SPECIFIED
     Route: 055
  171. MOMETASONE FUROATE [Suspect]
     Active Substance: MOMETASONE FUROATE
     Dosage: INTRA-NASAL, NASAL SPRAY, SUSPENSION.
     Route: 045
  172. MOMETASONE FUROATE [Suspect]
     Active Substance: MOMETASONE FUROATE
     Dosage: INTRA-NASAL, NASAL SPRAY, SUSPENSION.
     Route: 045
  173. MOMETASONE FUROATE [Suspect]
     Active Substance: MOMETASONE FUROATE
     Dosage: INTRA-NASAL
     Route: 045
  174. MOMETASONE FUROATE [Suspect]
     Active Substance: MOMETASONE FUROATE
     Dosage: NASAL SPRAY, SUSPENSION
     Route: 050
  175. MOMETASONE FUROATE [Suspect]
     Active Substance: MOMETASONE FUROATE
     Route: 065
  176. MOMETASONE FUROATE [Suspect]
     Active Substance: MOMETASONE FUROATE
     Route: 055
  177. MOMETASONE FUROATE [Suspect]
     Active Substance: MOMETASONE FUROATE
     Dosage: NASAL SPRAY, SUSPENSION
     Route: 065
  178. ZOPICLONE [Suspect]
     Active Substance: ZOPICLONE
     Indication: Product used for unknown indication
     Route: 065
  179. ZOPICLONE [Suspect]
     Active Substance: ZOPICLONE
     Indication: Prinzmetal angina
     Route: 065
  180. ZOPICLONE [Suspect]
     Active Substance: ZOPICLONE
     Indication: Migraine
     Route: 065
  181. ZOPICLONE [Suspect]
     Active Substance: ZOPICLONE
     Route: 048
  182. ZOPICLONE [Suspect]
     Active Substance: ZOPICLONE
     Route: 048
  183. TAMSULOSIN [Suspect]
     Active Substance: TAMSULOSIN
     Indication: Product used for unknown indication
     Dosage: NOT SPECIFIED
     Route: 065
  184. TAMSULOSIN [Suspect]
     Active Substance: TAMSULOSIN
     Dosage: TABLET (EXTENDED RELEASE)
     Route: 048
  185. CLONAZEPAM [Suspect]
     Active Substance: CLONAZEPAM
     Indication: Prinzmetal angina
     Route: 048
  186. CLONAZEPAM [Suspect]
     Active Substance: CLONAZEPAM
     Indication: Migraine
     Route: 048
  187. CLONAZEPAM [Suspect]
     Active Substance: CLONAZEPAM
     Route: 048
  188. CLONAZEPAM [Suspect]
     Active Substance: CLONAZEPAM
     Route: 065
  189. CLONAZEPAM [Suspect]
     Active Substance: CLONAZEPAM
     Route: 065
  190. CLONAZEPAM [Suspect]
     Active Substance: CLONAZEPAM
     Route: 048
  191. CLONAZEPAM [Suspect]
     Active Substance: CLONAZEPAM
     Route: 065
  192. CLONAZEPAM [Suspect]
     Active Substance: CLONAZEPAM
     Route: 048
  193. TAMSULOSIN HYDROCHLORIDE [Suspect]
     Active Substance: TAMSULOSIN HYDROCHLORIDE
     Indication: Product used for unknown indication
     Route: 065
  194. TAMSULOSIN HYDROCHLORIDE [Suspect]
     Active Substance: TAMSULOSIN HYDROCHLORIDE
     Route: 048
  195. TAMSULOSIN HYDROCHLORIDE [Suspect]
     Active Substance: TAMSULOSIN HYDROCHLORIDE
     Route: 065
  196. TAMSULOSIN HYDROCHLORIDE [Suspect]
     Active Substance: TAMSULOSIN HYDROCHLORIDE
     Route: 048
  197. TAMSULOSIN HYDROCHLORIDE [Suspect]
     Active Substance: TAMSULOSIN HYDROCHLORIDE
     Route: 048
  198. NITROGLYCERIN [Suspect]
     Active Substance: NITROGLYCERIN
     Indication: Prinzmetal angina
     Dosage: GLYCERYL TRINITRATE
     Route: 048
  199. NITROGLYCERIN [Suspect]
     Active Substance: NITROGLYCERIN
     Indication: Migraine
     Dosage: GLYCERYL TRINITRATE
     Route: 048
  200. NITROGLYCERIN [Suspect]
     Active Substance: NITROGLYCERIN
     Dosage: GLYCERYL TRINITRATE
     Route: 048
  201. NITROGLYCERIN [Suspect]
     Active Substance: NITROGLYCERIN
     Dosage: GLYCERYL TRINITRATE
     Route: 048
  202. NITROGLYCERIN [Suspect]
     Active Substance: NITROGLYCERIN
     Dosage: GLYCERYL TRINITRATE
     Route: 048
  203. NITROGLYCERIN [Suspect]
     Active Substance: NITROGLYCERIN
     Dosage: GLYCERYL TRINITRATE
     Route: 048
  204. NITROGLYCERIN [Suspect]
     Active Substance: NITROGLYCERIN
     Dosage: NITROGLYCERIN
     Route: 048
  205. NITROGLYCERIN [Suspect]
     Active Substance: NITROGLYCERIN
     Dosage: NITROGLYCERIN
     Route: 048
  206. NITROGLYCERIN [Suspect]
     Active Substance: NITROGLYCERIN
     Dosage: NITROGLYCERIN
     Route: 048
  207. NITROGLYCERIN [Suspect]
     Active Substance: NITROGLYCERIN
     Dosage: NITROGLYCERIN
     Route: 065
  208. NITROGLYCERIN [Suspect]
     Active Substance: NITROGLYCERIN
     Dosage: NITROGLYCERIN
     Route: 048
  209. NITROGLYCERIN [Suspect]
     Active Substance: NITROGLYCERIN
     Dosage: NITROGLYCERIN
     Route: 048
  210. NITROGLYCERIN [Suspect]
     Active Substance: NITROGLYCERIN
     Dosage: NITROGLYCERIN
     Route: 049
  211. NITROGLYCERIN [Suspect]
     Active Substance: NITROGLYCERIN
     Dosage: NITROGLYCERIN
     Route: 048
  212. NITROGLYCERIN [Suspect]
     Active Substance: NITROGLYCERIN
     Dosage: NITROGLYCERIN
     Route: 048
  213. NITROGLYCERIN [Suspect]
     Active Substance: NITROGLYCERIN
     Dosage: NITROGLYCERIN
     Route: 048
  214. NITROGLYCERIN [Suspect]
     Active Substance: NITROGLYCERIN
     Dosage: NITROGLYCERIN
     Route: 048
  215. NITROGLYCERIN [Suspect]
     Active Substance: NITROGLYCERIN
     Dosage: NITROGLYCERIN
     Route: 048
  216. NITROGLYCERIN [Suspect]
     Active Substance: NITROGLYCERIN
     Dosage: NITROGLYCERIN
     Route: 030
  217. NITROGLYCERIN [Suspect]
     Active Substance: NITROGLYCERIN
     Dosage: NITROGLYCERIN
     Route: 061
  218. NITROGLYCERIN [Suspect]
     Active Substance: NITROGLYCERIN
     Dosage: NITROGLYCERIN
     Route: 065
  219. NITROGLYCERIN [Suspect]
     Active Substance: NITROGLYCERIN
     Dosage: NITROGLYCERIN
     Route: 065
  220. NITROGLYCERIN [Suspect]
     Active Substance: NITROGLYCERIN
     Dosage: NITROGLYCERIN
     Route: 065
  221. NITROGLYCERIN [Suspect]
     Active Substance: NITROGLYCERIN
     Dosage: NITROGLYCERIN
     Route: 065
  222. NITROGLYCERIN [Suspect]
     Active Substance: NITROGLYCERIN
     Dosage: NITROGLYCERIN
     Route: 065
  223. NITROGLYCERIN [Suspect]
     Active Substance: NITROGLYCERIN
     Dosage: NITROGLYCERIN
     Route: 065
  224. NITROGLYCERIN [Suspect]
     Active Substance: NITROGLYCERIN
     Dosage: NITROGLYCERIN
     Route: 065
  225. NITROGLYCERIN [Suspect]
     Active Substance: NITROGLYCERIN
     Dosage: NITROGLYCERIN
     Route: 048
  226. NITROGLYCERIN [Suspect]
     Active Substance: NITROGLYCERIN
     Dosage: NITROGLYCERIN
     Route: 065
  227. NITROGLYCERIN [Suspect]
     Active Substance: NITROGLYCERIN
     Dosage: NITROGLYCERIN
     Route: 030
  228. NITROGLYCERIN [Suspect]
     Active Substance: NITROGLYCERIN
     Dosage: NITROGLYCERIN
     Route: 030
  229. NITROGLYCERIN [Suspect]
     Active Substance: NITROGLYCERIN
     Dosage: NITROGLYCERIN
     Route: 030
  230. NITROGLYCERIN [Suspect]
     Active Substance: NITROGLYCERIN
     Dosage: NITROGLYCERIN
     Route: 065
  231. NITROGLYCERIN [Suspect]
     Active Substance: NITROGLYCERIN
     Dosage: NITROGLYCERIN
     Route: 048
  232. NITROGLYCERIN [Suspect]
     Active Substance: NITROGLYCERIN
     Dosage: NITROGLYCERIN
     Route: 065
  233. NITROGLYCERIN [Suspect]
     Active Substance: NITROGLYCERIN
     Dosage: NITROGLYCERIN
     Route: 030
  234. NITROGLYCERIN [Suspect]
     Active Substance: NITROGLYCERIN
     Dosage: NITROGLYCERIN
     Route: 065
  235. NITROGLYCERIN [Suspect]
     Active Substance: NITROGLYCERIN
     Dosage: NITROGLYCERIN
     Route: 048
  236. NITROGLYCERIN [Suspect]
     Active Substance: NITROGLYCERIN
     Dosage: NITROGLYCERIN
     Route: 065
  237. NITROGLYCERIN [Suspect]
     Active Substance: NITROGLYCERIN
     Dosage: NITROGLYCERIN
     Route: 048
  238. NITROGLYCERIN [Suspect]
     Active Substance: NITROGLYCERIN
     Dosage: NITROGLYCERIN
     Route: 065
  239. NITRO-DUR [Suspect]
     Active Substance: NITROGLYCERIN
     Indication: Product used for unknown indication
     Dosage: PATCH, EXTENDED RELEASE
     Route: 065
  240. NITRO-DUR [Suspect]
     Active Substance: NITROGLYCERIN
     Dosage: PATCH, EXTENDED RELEASE
     Route: 065
  241. NITRO-DUR [Suspect]
     Active Substance: NITROGLYCERIN
     Route: 048
  242. NITRO-DUR [Suspect]
     Active Substance: NITROGLYCERIN
     Route: 065
  243. NITRO-DUR [Suspect]
     Active Substance: NITROGLYCERIN
     Route: 048
  244. NITRO-DUR [Suspect]
     Active Substance: NITROGLYCERIN
     Route: 048
  245. NITRO-DUR [Suspect]
     Active Substance: NITROGLYCERIN
     Route: 048
  246. TICAGRELOR [Suspect]
     Active Substance: TICAGRELOR
     Indication: Product used for unknown indication
     Route: 065
  247. TICAGRELOR [Suspect]
     Active Substance: TICAGRELOR
     Indication: Prinzmetal angina
     Route: 065
  248. TICAGRELOR [Suspect]
     Active Substance: TICAGRELOR
     Indication: Migraine
     Route: 065
  249. TICAGRELOR [Suspect]
     Active Substance: TICAGRELOR
     Route: 048
  250. TICAGRELOR [Suspect]
     Active Substance: TICAGRELOR
     Route: 048
  251. ALPRAZOLAM [Suspect]
     Active Substance: ALPRAZOLAM
     Indication: Prinzmetal angina
     Route: 065
  252. ALPRAZOLAM [Suspect]
     Active Substance: ALPRAZOLAM
     Indication: Migraine
  253. ACETAMINOPHEN [Suspect]
     Active Substance: ACETAMINOPHEN
     Indication: Prinzmetal angina
     Dosage: NOT SPECIFIED
     Route: 065
  254. ACETAMINOPHEN [Suspect]
     Active Substance: ACETAMINOPHEN
     Indication: Migraine
     Dosage: NOT SPECIFIED
     Route: 065
  255. ACETAMINOPHEN [Suspect]
     Active Substance: ACETAMINOPHEN
     Dosage: ACETAMINOPHEN AND CODEINE PHOSPHATE
     Route: 048
  256. ACETAMINOPHEN [Suspect]
     Active Substance: ACETAMINOPHEN
     Dosage: ACETAMINOPHEN AND CODEINE PHOSPHATE
     Route: 065
  257. ACETAMINOPHEN [Suspect]
     Active Substance: ACETAMINOPHEN
     Dosage: ACETAMINOPHEN AND CODEINE PHOSPHATE
     Route: 048
  258. ACETAMINOPHEN [Suspect]
     Active Substance: ACETAMINOPHEN
     Dosage: ACETAMINOPHEN AND CODEINE PHOSPHATE
     Route: 065
  259. ACETAMINOPHEN [Suspect]
     Active Substance: ACETAMINOPHEN
     Dosage: ACETAMINOPHEN AND CODEINE PHOSPHATE
     Route: 065
  260. ACETAMINOPHEN [Suspect]
     Active Substance: ACETAMINOPHEN
     Dosage: ACETAMINOPHEN + COD. PHOSP.?ELX.USP 160 MG-8 MG/5ML
     Route: 065
  261. ACETAMINOPHEN [Suspect]
     Active Substance: ACETAMINOPHEN
     Dosage: ACETAMINOPHEN + COD. PHOSP.?ELX.USP 160 MG-8 MG/5ML
     Route: 065
  262. ACETAMINOPHEN [Suspect]
     Active Substance: ACETAMINOPHEN
     Dosage: ACETAMINOPHEN + COD. PHOSP.?ELX.USP 160 MG-8 MG/5ML
     Route: 065
  263. ACETAMINOPHEN [Suspect]
     Active Substance: ACETAMINOPHEN
     Dosage: ACETAMINOPHEN + COD. PHOSP.?ELX.USP 160 MG-8 MG/5ML
     Route: 048
  264. ACETAMINOPHEN [Suspect]
     Active Substance: ACETAMINOPHEN
     Dosage: ACETAMINOPHEN + COD. PHOSP.
     Route: 048
  265. ACETAMINOPHEN [Suspect]
     Active Substance: ACETAMINOPHEN
     Dosage: ELIXIR, ACETAMINOPHEN AND COD.PHOS.ELX,USP160 MG-8MG/5ML
     Route: 065
  266. ACETAMINOPHEN [Suspect]
     Active Substance: ACETAMINOPHEN
     Dosage: ELIXIR, ACETAMINOPHEN AND COD.PHOS.ELX,USP160 MG-8MG/5ML
     Route: 065
  267. ACETAMINOPHEN [Suspect]
     Active Substance: ACETAMINOPHEN
     Route: 065
  268. AMLODIPINE [Suspect]
     Active Substance: AMLODIPINE BESYLATE
     Indication: Prinzmetal angina
     Dosage: AMLODIPINE
     Route: 065
  269. AMLODIPINE [Suspect]
     Active Substance: AMLODIPINE BESYLATE
     Indication: Migraine
     Dosage: AMLODIPINE BESILATE
     Route: 065
  270. AMLODIPINE [Suspect]
     Active Substance: AMLODIPINE BESYLATE
     Dosage: AMLODIPINE BESILATE
     Route: 065
  271. AMLODIPINE [Suspect]
     Active Substance: AMLODIPINE BESYLATE
     Dosage: AMLODIPINE BESILATE
     Route: 065
  272. AMLODIPINE [Suspect]
     Active Substance: AMLODIPINE BESYLATE
     Dosage: AMLODIPINE BESILATE
     Route: 065
  273. AMLODIPINE [Suspect]
     Active Substance: AMLODIPINE BESYLATE
     Dosage: AMLODIPINE BESILATE
     Route: 065
  274. AMLODIPINE [Suspect]
     Active Substance: AMLODIPINE BESYLATE
     Dosage: AMLODIPINE BESILATE
     Route: 065
  275. AMLODIPINE [Suspect]
     Active Substance: AMLODIPINE BESYLATE
     Dosage: AMLODIPINE BESILATE
     Route: 065
  276. AMLODIPINE [Suspect]
     Active Substance: AMLODIPINE BESYLATE
     Dosage: AMLODIPINE BESILATE
     Route: 065
  277. AMLODIPINE [Suspect]
     Active Substance: AMLODIPINE BESYLATE
     Dosage: AMLODIPINE BESILATE
     Route: 065
  278. AMLODIPINE [Suspect]
     Active Substance: AMLODIPINE BESYLATE
     Dosage: AMLODIPINE BESYLATE
     Route: 065
  279. AMLODIPINE [Suspect]
     Active Substance: AMLODIPINE BESYLATE
     Dosage: AMLODIPINE BESYLATE
     Route: 065
  280. AMLODIPINE [Suspect]
     Active Substance: AMLODIPINE BESYLATE
     Dosage: AMLODIPINE BESYLATE
     Route: 065
  281. AMLODIPINE [Suspect]
     Active Substance: AMLODIPINE BESYLATE
     Dosage: AMLODIPINE
     Route: 065
  282. LEVOTHYROXINE [Suspect]
     Active Substance: LEVOTHYROXINE\LEVOTHYROXINE SODIUM
     Indication: Prinzmetal angina
     Dosage: NOT SPECIFIED
     Route: 065
  283. LEVOTHYROXINE [Suspect]
     Active Substance: LEVOTHYROXINE\LEVOTHYROXINE SODIUM
     Indication: Migraine
     Dosage: LEVOTHYROXINE SODIUM
     Route: 065
  284. LEVOTHYROXINE [Suspect]
     Active Substance: LEVOTHYROXINE\LEVOTHYROXINE SODIUM
     Dosage: LEVOTHYROXINE SODIUM
     Route: 065
  285. LEVOTHYROXINE [Suspect]
     Active Substance: LEVOTHYROXINE\LEVOTHYROXINE SODIUM
     Dosage: LEVOTHYROXINE SODIUM
     Route: 065
  286. BRILINTA [Suspect]
     Active Substance: TICAGRELOR
     Indication: Prinzmetal angina
     Route: 065
  287. BRILINTA [Suspect]
     Active Substance: TICAGRELOR
     Indication: Migraine
     Route: 048
  288. BRILINTA [Suspect]
     Active Substance: TICAGRELOR
     Route: 065
  289. BRILINTA [Suspect]
     Active Substance: TICAGRELOR
     Route: 065
  290. BRILINTA [Suspect]
     Active Substance: TICAGRELOR
     Route: 048
  291. BRILINTA [Suspect]
     Active Substance: TICAGRELOR
     Route: 065
  292. BRILINTA [Suspect]
     Active Substance: TICAGRELOR
     Route: 065
  293. BRILINTA [Suspect]
     Active Substance: TICAGRELOR
     Route: 048
  294. BRILINTA [Suspect]
     Active Substance: TICAGRELOR
     Route: 048
  295. BRILINTA [Suspect]
     Active Substance: TICAGRELOR
     Route: 065
  296. BRILINTA [Suspect]
     Active Substance: TICAGRELOR
     Route: 065
  297. BRILINTA [Suspect]
     Active Substance: TICAGRELOR
     Route: 048
  298. BRILINTA [Suspect]
     Active Substance: TICAGRELOR
     Route: 065
  299. BRILINTA [Suspect]
     Active Substance: TICAGRELOR
     Route: 048
  300. BRILINTA [Suspect]
     Active Substance: TICAGRELOR
     Route: 065
  301. TRAZODONE HYDROCHLORIDE [Suspect]
     Active Substance: TRAZODONE HYDROCHLORIDE
     Indication: Product used for unknown indication
     Route: 065
  302. TRAZODONE HYDROCHLORIDE [Suspect]
     Active Substance: TRAZODONE HYDROCHLORIDE
     Route: 048
  303. TRAZODONE HYDROCHLORIDE [Suspect]
     Active Substance: TRAZODONE HYDROCHLORIDE
     Route: 065
  304. BISOPROLOL FUMARATE [Suspect]
     Active Substance: BISOPROLOL FUMARATE
     Indication: Product used for unknown indication
     Route: 065
  305. ASPIRIN [Suspect]
     Active Substance: ASPIRIN
     Indication: Prinzmetal angina
     Route: 048
  306. ASPIRIN [Suspect]
     Active Substance: ASPIRIN
     Indication: Migraine
     Route: 065
  307. ASPIRIN [Suspect]
     Active Substance: ASPIRIN
     Route: 048
  308. ASPIRIN [Suspect]
     Active Substance: ASPIRIN
     Route: 065
  309. ASPIRIN [Suspect]
     Active Substance: ASPIRIN
     Route: 065
  310. ASPIRIN [Suspect]
     Active Substance: ASPIRIN
     Route: 048
  311. MORNIFLUMATE [Suspect]
     Active Substance: MORNIFLUMATE
     Indication: Prinzmetal angina
     Route: 065
  312. MORNIFLUMATE [Suspect]
     Active Substance: MORNIFLUMATE
     Indication: Migraine
     Route: 065
  313. MORNIFLUMATE [Suspect]
     Active Substance: MORNIFLUMATE
     Route: 065
  314. CICLOPIROX [Suspect]
     Active Substance: CICLOPIROX\TOCOPHEROL
     Indication: Product used for unknown indication
     Dosage: CICLOPIROX OLAMINE
     Route: 065
  315. CICLOPIROX [Suspect]
     Active Substance: CICLOPIROX\TOCOPHEROL
     Dosage: CICLOPIROX
     Route: 048
  316. CICLOPIROX [Suspect]
     Active Substance: CICLOPIROX\TOCOPHEROL
     Dosage: CICLOPIROX
     Route: 048
  317. CICLOPIROX [Suspect]
     Active Substance: CICLOPIROX\TOCOPHEROL
     Dosage: CICLOPIROX
     Route: 048
  318. CICLOPIROX [Suspect]
     Active Substance: CICLOPIROX\TOCOPHEROL
     Dosage: CICLOPIROX OLAMINE
     Route: 048
  319. CICLOPIROX [Suspect]
     Active Substance: CICLOPIROX\TOCOPHEROL
     Dosage: CICLOPIROX OLAMINE
     Route: 048
  320. RIVOTRIL [Suspect]
     Active Substance: CLONAZEPAM
     Indication: Product used for unknown indication
     Route: 048
  321. RIVOTRIL [Suspect]
     Active Substance: CLONAZEPAM
     Indication: Prinzmetal angina
     Route: 048
  322. RIVOTRIL [Suspect]
     Active Substance: CLONAZEPAM
     Indication: Migraine
     Route: 048
  323. RIVOTRIL [Suspect]
     Active Substance: CLONAZEPAM
     Route: 048
  324. RIVOTRIL [Suspect]
     Active Substance: CLONAZEPAM
     Route: 065
  325. NITROGLYCERIN [Suspect]
     Active Substance: NITROGLYCERIN
     Indication: Prinzmetal angina
     Route: 048
  326. NITROGLYCERIN [Suspect]
     Active Substance: NITROGLYCERIN
     Route: 048
  327. NITROGLYCERIN [Suspect]
     Active Substance: NITROGLYCERIN
     Dosage: METERED-DOSE (AEROSOL)
     Route: 048
  328. ACETAMINOPHEN\CODEINE PHOSPHATE [Suspect]
     Active Substance: ACETAMINOPHEN\CODEINE PHOSPHATE
     Indication: Product used for unknown indication
     Dosage: ELIXIR
     Route: 065
  329. DEXLANSOPRAZOLE [Suspect]
     Active Substance: DEXLANSOPRAZOLE
     Indication: Product used for unknown indication
     Dosage: CAPSULE, DELAYED RELEASE
     Route: 065
  330. RAMIPRIL [Suspect]
     Active Substance: RAMIPRIL
     Indication: Product used for unknown indication
     Route: 065
  331. NASONEX [Suspect]
     Active Substance: MOMETASONE FUROATE
     Indication: Product used for unknown indication
     Dosage: INTRA-NASAL, SPRAY METERED DOSE
     Route: 065
  332. NASONEX [Suspect]
     Active Substance: MOMETASONE FUROATE
     Route: 055
  333. NASONEX [Suspect]
     Active Substance: MOMETASONE FUROATE
     Dosage: INTRA-NASAL
     Route: 065
  334. NASONEX [Suspect]
     Active Substance: MOMETASONE FUROATE
     Route: 065
  335. NASONEX [Suspect]
     Active Substance: MOMETASONE FUROATE
     Route: 065
  336. SYNTHROID [Suspect]
     Active Substance: LEVOTHYROXINE SODIUM
     Indication: Product used for unknown indication
     Dosage: NOT SPECIFIED
     Route: 065
  337. SYNTHROID [Suspect]
     Active Substance: LEVOTHYROXINE SODIUM
     Route: 065
  338. CODEINE [Suspect]
     Active Substance: CODEINE
     Indication: Product used for unknown indication
     Dosage: NOT SPECIFIED
     Route: 065
  339. HYDROMORPHONE [Suspect]
     Active Substance: HYDROMORPHONE
     Indication: Product used for unknown indication
     Route: 065
  340. HYDROMORPHONE [Suspect]
     Active Substance: HYDROMORPHONE
     Indication: Prinzmetal angina
  341. HYDROMORPHONE [Suspect]
     Active Substance: HYDROMORPHONE
     Indication: Migraine
  342. METOCLOPRAMIDE HYDROCHLORIDE [Suspect]
     Active Substance: METOCLOPRAMIDE HYDROCHLORIDE
     Indication: Migraine
     Route: 065
  343. METOCLOPRAMIDE HYDROCHLORIDE [Suspect]
     Active Substance: METOCLOPRAMIDE HYDROCHLORIDE
     Indication: Prinzmetal angina
     Route: 065
  344. METOCLOPRAMIDE HYDROCHLORIDE [Suspect]
     Active Substance: METOCLOPRAMIDE HYDROCHLORIDE
     Route: 065
  345. METOCLOPRAMIDE HYDROCHLORIDE [Suspect]
     Active Substance: METOCLOPRAMIDE HYDROCHLORIDE
     Route: 065
  346. METOCLOPRAMIDE HYDROCHLORIDE [Suspect]
     Active Substance: METOCLOPRAMIDE HYDROCHLORIDE
     Route: 065
  347. METOCLOPRAMIDE HYDROCHLORIDE [Suspect]
     Active Substance: METOCLOPRAMIDE HYDROCHLORIDE
     Route: 065
  348. METOCLOPRAMIDE HYDROCHLORIDE [Suspect]
     Active Substance: METOCLOPRAMIDE HYDROCHLORIDE
     Route: 048
  349. METOCLOPRAMIDE HYDROCHLORIDE [Suspect]
     Active Substance: METOCLOPRAMIDE HYDROCHLORIDE
     Route: 065
  350. METOCLOPRAMIDE HYDROCHLORIDE [Suspect]
     Active Substance: METOCLOPRAMIDE HYDROCHLORIDE
     Route: 065
  351. METOCLOPRAMIDE HYDROCHLORIDE [Suspect]
     Active Substance: METOCLOPRAMIDE HYDROCHLORIDE
     Route: 048
  352. METOCLOPRAMIDE HYDROCHLORIDE [Suspect]
     Active Substance: METOCLOPRAMIDE HYDROCHLORIDE
     Route: 065
  353. METOCLOPRAMIDE HYDROCHLORIDE [Suspect]
     Active Substance: METOCLOPRAMIDE HYDROCHLORIDE
     Route: 048
  354. HYDROCORTISONE PROBUTATE [Suspect]
     Active Substance: HYDROCORTISONE PROBUTATE
     Indication: Product used for unknown indication
     Route: 061
  355. ALPRAZOLAM [Suspect]
     Active Substance: ALPRAZOLAM
     Indication: Product used for unknown indication
     Route: 065
  356. NITROGLYCERIN [Suspect]
     Active Substance: NITROGLYCERIN
     Indication: Prinzmetal angina
     Route: 065
  357. NITROGLYCERIN [Suspect]
     Active Substance: NITROGLYCERIN
     Indication: Migraine
     Route: 065
  358. NITROGLYCERIN [Suspect]
     Active Substance: NITROGLYCERIN
     Route: 048
  359. NITROGLYCERIN [Suspect]
     Active Substance: NITROGLYCERIN
     Route: 030
  360. NITROGLYCERIN [Suspect]
     Active Substance: NITROGLYCERIN
     Route: 030
  361. NITROGLYCERIN [Suspect]
     Active Substance: NITROGLYCERIN
     Route: 065
  362. NITROGLYCERIN [Suspect]
     Active Substance: NITROGLYCERIN
     Route: 030
  363. NITROGLYCERIN [Suspect]
     Active Substance: NITROGLYCERIN
     Route: 065
  364. NITROGLYCERIN [Suspect]
     Active Substance: NITROGLYCERIN
     Route: 048
  365. NITROGLYCERIN [Suspect]
     Active Substance: NITROGLYCERIN
     Route: 048
  366. NITROGLYCERIN [Suspect]
     Active Substance: NITROGLYCERIN
     Route: 065
  367. NITROGLYCERIN [Suspect]
     Active Substance: NITROGLYCERIN
     Route: 065
  368. NITROGLYCERIN [Suspect]
     Active Substance: NITROGLYCERIN
     Route: 065
  369. BISOPROLOL [Concomitant]
     Active Substance: BISOPROLOL\BISOPROLOL FUMARATE
     Indication: Prinzmetal angina
     Dosage: BISOPROLOL
     Route: 065
  370. BISOPROLOL [Concomitant]
     Active Substance: BISOPROLOL\BISOPROLOL FUMARATE
     Indication: Migraine
     Dosage: BISOPROLOL
     Route: 048
  371. BISOPROLOL [Concomitant]
     Active Substance: BISOPROLOL\BISOPROLOL FUMARATE
     Dosage: BISOPROLOL
     Route: 065
  372. BISOPROLOL [Concomitant]
     Active Substance: BISOPROLOL\BISOPROLOL FUMARATE
     Dosage: BISOPROLOL
     Route: 048
  373. BISOPROLOL [Concomitant]
     Active Substance: BISOPROLOL\BISOPROLOL FUMARATE
     Dosage: BISOPROLOL
     Route: 065
  374. BISOPROLOL [Concomitant]
     Active Substance: BISOPROLOL\BISOPROLOL FUMARATE
     Dosage: BISOPROLOL FUMARATE
     Route: 048
  375. BISOPROLOL [Concomitant]
     Active Substance: BISOPROLOL\BISOPROLOL FUMARATE
     Dosage: BISOPROLOL FUMARATE
     Route: 065
  376. BISOPROLOL [Concomitant]
     Active Substance: BISOPROLOL\BISOPROLOL FUMARATE
     Dosage: BISOPROLOL FUMARATE
     Route: 065
  377. NITROGLYCERIN [Concomitant]
     Active Substance: NITROGLYCERIN
     Indication: Prinzmetal angina
     Route: 048
  378. ESCITALOPRAM OXALATE [Concomitant]
     Active Substance: ESCITALOPRAM OXALATE
     Indication: Product used for unknown indication
  379. RIVOTRIL [Concomitant]
     Active Substance: CLONAZEPAM
     Indication: Product used for unknown indication
  380. RIVOTRIL [Concomitant]
     Active Substance: CLONAZEPAM
  381. RIVOTRIL [Concomitant]
     Active Substance: CLONAZEPAM
     Route: 065
  382. RIVOTRIL [Concomitant]
     Active Substance: CLONAZEPAM
     Route: 065
  383. RIVOTRIL [Concomitant]
     Active Substance: CLONAZEPAM
     Route: 065
  384. RIVOTRIL [Concomitant]
     Active Substance: CLONAZEPAM
     Route: 048
  385. RIVOTRIL [Concomitant]
     Active Substance: CLONAZEPAM
     Route: 048
  386. RIVOTRIL [Concomitant]
     Active Substance: CLONAZEPAM
     Route: 048
  387. RIVOTRIL [Concomitant]
     Active Substance: CLONAZEPAM
     Route: 048
  388. ASPIRIN [Concomitant]
     Active Substance: ASPIRIN
     Indication: Prinzmetal angina
     Route: 048
  389. ASPIRIN [Concomitant]
     Active Substance: ASPIRIN
     Indication: Migraine
     Route: 065
  390. ASPIRIN [Concomitant]
     Active Substance: ASPIRIN
     Route: 065
  391. ASPIRIN [Concomitant]
     Active Substance: ASPIRIN
     Route: 065
  392. ASPIRIN [Concomitant]
     Active Substance: ASPIRIN
     Route: 065
  393. ASPIRIN [Concomitant]
     Active Substance: ASPIRIN
     Route: 065
  394. ASPIRIN [Concomitant]
     Active Substance: ASPIRIN
     Route: 065
  395. ASPIRIN [Concomitant]
     Active Substance: ASPIRIN
     Route: 048
  396. HYDROMORPHONE [Concomitant]
     Active Substance: HYDROMORPHONE
     Indication: Product used for unknown indication
     Route: 065
  397. PREDNISONE [Concomitant]
     Active Substance: PREDNISONE
     Indication: Prinzmetal angina
     Dosage: NOT SPECIFIED
  398. PREDNISONE [Concomitant]
     Active Substance: PREDNISONE
     Indication: Migraine
  399. AMLODIPINE [Concomitant]
     Active Substance: AMLODIPINE BESYLATE
     Indication: Product used for unknown indication
     Dosage: AMLODIPINE
     Route: 065
  400. AMLODIPINE [Concomitant]
     Active Substance: AMLODIPINE BESYLATE
     Dosage: AMLODIPINE BESYLATE
     Route: 065
  401. HYDROCORTISONE [Concomitant]
     Active Substance: HYDROCORTISONE
     Indication: Prinzmetal angina
     Route: 061
  402. HYDROCORTISONE [Concomitant]
     Active Substance: HYDROCORTISONE
     Indication: Migraine
     Route: 061
  403. METOCLOPRAMIDE [Concomitant]
     Active Substance: METOCLOPRAMIDE
     Indication: Migraine
  404. NITROGLYCERIN [Concomitant]
     Active Substance: NITROGLYCERIN
     Indication: Prinzmetal angina
     Route: 048
  405. NITROGLYCERIN [Concomitant]
     Active Substance: NITROGLYCERIN
     Indication: Migraine
     Route: 048
  406. NITROGLYCERIN [Concomitant]
     Active Substance: NITROGLYCERIN
     Route: 065
  407. NITROGLYCERIN [Concomitant]
     Active Substance: NITROGLYCERIN
     Route: 048
  408. NITROGLYCERIN [Concomitant]
     Active Substance: NITROGLYCERIN
     Route: 065
  409. ZOPICLONE [Concomitant]
     Active Substance: ZOPICLONE
     Indication: Prinzmetal angina
     Route: 048
  410. ZOPICLONE [Concomitant]
     Active Substance: ZOPICLONE
     Indication: Migraine
     Route: 048
  411. BENZOYL PEROXIDE [Concomitant]
     Active Substance: BENZOYL PEROXIDE
     Indication: Product used for unknown indication
     Route: 061
  412. BENZOYL PEROXIDE [Concomitant]
     Active Substance: BENZOYL PEROXIDE
     Indication: Prinzmetal angina
     Route: 061
  413. BENZOYL PEROXIDE [Concomitant]
     Active Substance: BENZOYL PEROXIDE
     Indication: Migraine
  414. DEXILANT [Concomitant]
     Active Substance: DEXLANSOPRAZOLE
     Indication: Product used for unknown indication
  415. DEXILANT [Concomitant]
     Active Substance: DEXLANSOPRAZOLE
     Dosage: CAPSULE, DELAYED RELEASE
     Route: 048
  416. DEXILANT [Concomitant]
     Active Substance: DEXLANSOPRAZOLE
     Route: 048
  417. DEXILANT [Concomitant]
     Active Substance: DEXLANSOPRAZOLE
  418. DILTIAZEM [Concomitant]
     Active Substance: DILTIAZEM
     Indication: Prinzmetal angina
  419. DILTIAZEM [Concomitant]
     Active Substance: DILTIAZEM
     Indication: Migraine
     Route: 048
  420. DILTIAZEM [Concomitant]
     Active Substance: DILTIAZEM
     Route: 065
  421. ESCITALOPRAM [Concomitant]
     Active Substance: ESCITALOPRAM OXALATE
     Indication: Product used for unknown indication
     Dosage: ESCITALOPRAM
  422. ESCITALOPRAM [Concomitant]
     Active Substance: ESCITALOPRAM OXALATE
     Dosage: ESCITALOPRAM OXALATE
  423. MORNIFLUMATE [Concomitant]
     Active Substance: MORNIFLUMATE
     Indication: Prinzmetal angina
  424. MORNIFLUMATE [Concomitant]
     Active Substance: MORNIFLUMATE
     Indication: Migraine
     Route: 065
  425. RAMIPRIL [Concomitant]
     Active Substance: RAMIPRIL
     Indication: Prinzmetal angina
     Route: 048
  426. RAMIPRIL [Concomitant]
     Active Substance: RAMIPRIL
     Indication: Migraine
  427. RAMIPRIL [Concomitant]
     Active Substance: RAMIPRIL
  428. RAMIPRIL [Concomitant]
     Active Substance: RAMIPRIL
  429. RAMIPRIL [Concomitant]
     Active Substance: RAMIPRIL
     Route: 048
  430. RAMIPRIL [Concomitant]
     Active Substance: RAMIPRIL
     Route: 065
  431. RAMIPRIL [Concomitant]
     Active Substance: RAMIPRIL
     Route: 065
  432. TRAZODONE [Concomitant]
     Active Substance: TRAZODONE HYDROCHLORIDE
     Indication: Prinzmetal angina
     Route: 048
  433. TRAZODONE [Concomitant]
     Active Substance: TRAZODONE HYDROCHLORIDE
     Indication: Migraine
     Route: 065
  434. CICLOPIROX [CICLOPIROX OLAMINE] [Concomitant]
     Indication: Prinzmetal angina
     Route: 065
  435. CICLOPIROX [CICLOPIROX OLAMINE] [Concomitant]
     Indication: Migraine
     Route: 048
  436. ACETAMINOPHEN\CODEINE PHOSPHATE [Concomitant]
     Active Substance: ACETAMINOPHEN\CODEINE PHOSPHATE
     Indication: Product used for unknown indication
     Dosage: ACETAMINOPHEN;CODEINE PHOSPHATE, 1 IN 6 HOURS
     Route: 065
  437. ACETAMINOPHEN\CODEINE PHOSPHATE [Concomitant]
     Active Substance: ACETAMINOPHEN\CODEINE PHOSPHATE
     Route: 048
  438. ACETAMINOPHEN\CODEINE PHOSPHATE [Concomitant]
     Active Substance: ACETAMINOPHEN\CODEINE PHOSPHATE
     Dosage: 1 EVERY 1 DAYS
     Route: 048
  439. NITROGLYCERIN [Concomitant]
     Active Substance: NITROGLYCERIN
     Indication: Prinzmetal angina
     Route: 048
  440. NITROGLYCERIN [Concomitant]
     Active Substance: NITROGLYCERIN
     Route: 048
  441. NITROGLYCERIN [Concomitant]
     Active Substance: NITROGLYCERIN
     Route: 048
  442. NASONEX [Concomitant]
     Active Substance: MOMETASONE FUROATE
     Indication: Product used for unknown indication
     Dosage: INTRA-NASAL, SPRAY METERED DOSE
     Route: 065
  443. NASONEX [Concomitant]
     Active Substance: MOMETASONE FUROATE
     Route: 055
  444. NASONEX [Concomitant]
     Active Substance: MOMETASONE FUROATE
     Dosage: INTRA-NASAL
     Route: 065
  445. NASONEX [Concomitant]
     Active Substance: MOMETASONE FUROATE
     Route: 065
  446. NASONEX [Concomitant]
     Active Substance: MOMETASONE FUROATE
     Route: 065
  447. SYNTHROID [Concomitant]
     Active Substance: LEVOTHYROXINE SODIUM
     Indication: Prinzmetal angina
     Dosage: NOT SPECIFIED
     Route: 065
  448. SYNTHROID [Concomitant]
     Active Substance: LEVOTHYROXINE SODIUM
     Indication: Migraine
  449. TESTOSTERONE [Concomitant]
     Active Substance: TESTOSTERONE
     Indication: Prinzmetal angina
     Dosage: NOT SPECIFIED
     Route: 065
  450. TESTOSTERONE [Concomitant]
     Active Substance: TESTOSTERONE
     Indication: Migraine
     Dosage: NOT SPECIFIED
     Route: 065

REACTIONS (4)
  - Device dislocation [Recovered/Resolved]
  - Device malfunction [Recovered/Resolved]
  - Drug ineffective [Recovered/Resolved]
  - Product use in unapproved indication [Recovered/Resolved]
